FAERS Safety Report 17653880 (Version 1)
Quarter: 2020Q2

REPORT INFORMATION
  Report Type: Spontaneous
  Country: FR (occurrence: FR)
  Receive Date: 20200410
  Receipt Date: 20200410
  Transmission Date: 20200713
  Serious: Yes (Death)
  Sender: FDA-Public Use
  Company Number: FR-TEVA-2020-FR-1221561

PATIENT
  Age: 70 Year
  Sex: Male

DRUGS (4)
  1. PLAQUENIL [Suspect]
     Active Substance: HYDROXYCHLOROQUINE SULFATE
     Indication: CORONAVIRUS INFECTION
     Dosage: AT D1 THEN 400MG / DAY, UNIT DOSE: 800 MG
     Route: 048
     Dates: start: 20200324, end: 20200325
  2. EBILFUMIN 75 MG, G?LULE [Suspect]
     Active Substance: OSELTAMIVIR PHOSPHATE
     Indication: CORONAVIRUS INFECTION
     Dosage: 75 MG
     Route: 048
     Dates: start: 20200323, end: 20200325
  3. CEFTRIAXONE MYLAN [Suspect]
     Active Substance: CEFTRIAXONE
     Indication: CORONAVIRUS INFECTION
     Dosage: 1 GRAM
     Route: 042
     Dates: start: 20200323, end: 20200325
  4. COVERSYL 5 MG, COMPRIM? PELLICUL? S?CABLE [Concomitant]
     Indication: HYPERTENSION
     Dosage: 5 MG
     Route: 048
     Dates: end: 20200322

REACTIONS (1)
  - Cardiac arrest [Fatal]

NARRATIVE: CASE EVENT DATE: 20200326
